FAERS Safety Report 18819395 (Version 1)
Quarter: 2021Q1

REPORT INFORMATION
  Report Type: Spontaneous
  Country: US (occurrence: US)
  Receive Date: 20210201
  Receipt Date: 20210201
  Transmission Date: 20210419
  Serious: No
  Sender: FDA-Public Use
  Company Number: US-KYOWAKIRIN-2021BKK000869

PATIENT

DRUGS (1)
  1. CRYSVITA [Suspect]
     Active Substance: BUROSUMAB-TWZA
     Indication: HYPOPHOSPHATAEMIC OSTEOMALACIA
     Dosage: 60 MG, EVERY 28 DAYS
     Route: 058

REACTIONS (4)
  - Fibroblast growth factor 23 increased [Recovering/Resolving]
  - Blood 1,25-dihydroxycholecalciferol increased [Not Recovered/Not Resolved]
  - Blood alkaline phosphatase increased [Recovered/Resolved]
  - Blood parathyroid hormone increased [Not Recovered/Not Resolved]
